FAERS Safety Report 8450983-8 (Version None)
Quarter: 2012Q2

REPORT INFORMATION
  Report Type: 
  Country: None (occurrence: None)
  Receive Date: 20120620
  Receipt Date: 20120618
  Transmission Date: 20120825
  Serious: Yes (Other)
  Sender: FDA-Public Use
  Company Number: US-PFIZER INC-2012147179

PATIENT
  Sex: Male

DRUGS (1)
  1. CHANTIX [Suspect]
     Dosage: UNK
     Dates: start: 20090101

REACTIONS (8)
  - AGGRESSION [None]
  - INSOMNIA [None]
  - BIPOLAR DISORDER [None]
  - ANXIETY [None]
  - POST-TRAUMATIC STRESS DISORDER [None]
  - HALLUCINATION [None]
  - MENTAL DISORDER [None]
  - DEPRESSION [None]
